FAERS Safety Report 7949496-9 (Version None)
Quarter: 2011Q4

REPORT INFORMATION
  Report Type: 
  Country: None (occurrence: None)
  Receive Date: 20111123
  Receipt Date: 20111111
  Transmission Date: 20120403
  Serious: Yes (Hospitalization)
  Sender: FDA-Public Use
  Company Number: 2011S1000105

PATIENT
  Age: 60 Year
  Sex: Male
  Weight: 75 kg

DRUGS (10)
  1. LOSARTAN POTASSIUM [Concomitant]
  2. KRYSTEXXA [Suspect]
     Indication: GOUT
     Dosage: X1;IV 8 MG;X1;IV
     Route: 042
     Dates: start: 20111028, end: 20111028
  3. KRYSTEXXA [Suspect]
     Indication: GOUT
     Dosage: X1;IV 8 MG;X1;IV
     Route: 042
     Dates: start: 20111111, end: 20111111
  4. ALLEGRA [Concomitant]
  5. COREG [Concomitant]
  6. TYLENOL (CAPLET) [Concomitant]
  7. ALLOPURINOL [Concomitant]
  8. LASIX [Concomitant]
  9. POTASSIUM ACETATE [Concomitant]
  10. HYDROCORTISONE [Concomitant]

REACTIONS (2)
  - CARDIAC ARREST [None]
  - ANAPHYLACTIC REACTION [None]
